FAERS Safety Report 9123006 (Version 1)
Quarter: 2013Q1

REPORT INFORMATION
  Report Type: Spontaneous
  Country: US (occurrence: US)
  Receive Date: 20130227
  Receipt Date: 20130227
  Transmission Date: 20140127
  Serious: No
  Sender: FDA-Public Use
  Company Number: US-PFIZER INC-2013069115

PATIENT
  Age: 73 Year
  Sex: Female

DRUGS (1)
  1. XALKORI [Suspect]
     Indication: LUNG NEOPLASM MALIGNANT
     Dosage: 250 MG EVERY 12 HOURS
     Dates: start: 20130221

REACTIONS (3)
  - Nausea [Unknown]
  - Pyrexia [Unknown]
  - Fatigue [Unknown]
